FAERS Safety Report 17150029 (Version 1)
Quarter: 2019Q4

REPORT INFORMATION
  Report Type: Spontaneous
  Country: US (occurrence: US)
  Receive Date: 20191213
  Receipt Date: 20191213
  Transmission Date: 20200122
  Serious: Yes (Other)
  Sender: FDA-Public Use
  Company Number: US-GILEAD-2019-0442002

PATIENT
  Sex: Female

DRUGS (1)
  1. ATRIPLA [Suspect]
     Active Substance: EFAVIRENZ\EMTRICITABINE\TENOFOVIR DISOPROXIL FUMARATE
     Indication: PRODUCT USED FOR UNKNOWN INDICATION
     Dosage: UNK
     Route: 048
     Dates: start: 2012

REACTIONS (6)
  - Pain [Not Recovered/Not Resolved]
  - Anxiety [Not Recovered/Not Resolved]
  - Economic problem [Not Recovered/Not Resolved]
  - Emotional distress [Not Recovered/Not Resolved]
  - Chronic kidney disease [Unknown]
  - Anhedonia [Not Recovered/Not Resolved]
